FAERS Safety Report 9325693 (Version 1)
Quarter: 2013Q2

REPORT INFORMATION
  Report Type: Spontaneous
  Country: US (occurrence: None)
  Receive Date: 20130603
  Receipt Date: 20130603
  Transmission Date: 20140414
  Serious: Yes (Death)
  Sender: FDA-Public Use
  Company Number: None

PATIENT
  Age: 81 Year
  Sex: Male
  Weight: 83.46 kg

DRUGS (2)
  1. LACTATED RINGERS [Suspect]
     Dates: start: 20120919, end: 20121009
  2. POTASSIUM CHLORIDE [Concomitant]

REACTIONS (1)
  - Product contamination microbial [None]
